FAERS Safety Report 24687541 (Version 1)
Quarter: 2024Q4

REPORT INFORMATION
  Report Type: Spontaneous
  Country: US (occurrence: None)
  Receive Date: 20241202
  Receipt Date: 20241202
  Transmission Date: 20250115
  Serious: Yes (Other)
  Sender: Public
  Company Number: None

PATIENT
  Age: 64 Year
  Sex: Female
  Weight: 65.25 kg

DRUGS (3)
  1. LIDOPRO PATCH [Suspect]
     Active Substance: LIDOCAINE HYDROCHLORIDE\MENTHOL\METHYL SALICYLATE
     Indication: Limb injury
     Dosage: TOPICAL
     Route: 061
     Dates: start: 20241129, end: 20241130
  2. Neprinol [Concomitant]
  3. GINGER [Concomitant]
     Active Substance: GINGER

REACTIONS (2)
  - Bladder pain [None]
  - Pain [None]

NARRATIVE: CASE EVENT DATE: 20241129
